FAERS Safety Report 8201995-0 (Version None)
Quarter: 2012Q1

REPORT INFORMATION
  Report Type: 
  Country: None (occurrence: None)
  Receive Date: 20120312
  Receipt Date: 20120304
  Transmission Date: 20120608
  Serious: Yes (Hospitalization, Other)
  Sender: FDA-Public Use
  Company Number: PHEH2011US012723

PATIENT
  Age: 58 Year
  Sex: Female

DRUGS (9)
  1. KEPPRA [Concomitant]
     Dosage: 1000 MG, UNK
  2. OXYBUTYNIN [Concomitant]
     Dosage: 5 MG, UNK
  3. PREDNISONE TAB [Concomitant]
     Dosage: 500 MG, UNK
  4. MULTIHANCE [Concomitant]
     Dosage: 20 ML, UNK
     Route: 042
  5. STEROIDS NOS [Concomitant]
     Dosage: UNK UKN, UNK
     Route: 042
  6. DETROL [Concomitant]
     Dosage: UNK UKN, UNK
  7. GILENYA [Suspect]
     Dosage: 0.5 MG, UNK
     Route: 048
     Dates: start: 20110201, end: 20111229
  8. ACTH [Concomitant]
     Dosage: 80 U, UNK
  9. VITAMIN D [Concomitant]
     Dosage: UNK UKN, UNK

REACTIONS (14)
  - MENTAL STATUS CHANGES [None]
  - COGNITIVE DISORDER [None]
  - CENTRAL NERVOUS SYSTEM LESION [None]
  - HYPERTENSION [None]
  - HALLUCINATION [None]
  - POSTERIOR REVERSIBLE ENCEPHALOPATHY SYNDROME [None]
  - CONVULSION [None]
  - CONFUSIONAL STATE [None]
  - LETHARGY [None]
  - HEADACHE [None]
  - SOMNOLENCE [None]
  - HEMIPARESIS [None]
  - ENCEPHALOPATHY [None]
  - PSYCHOTIC DISORDER [None]
